FAERS Safety Report 9698712 (Version 2)
Quarter: 2013Q4

REPORT INFORMATION
  Report Type: Spontaneous
  Country: IE (occurrence: IE)
  Receive Date: 20131120
  Receipt Date: 20131120
  Transmission Date: 20140711
  Serious: Yes (Other)
  Sender: FDA-Public Use
  Company Number: IE-PFIZER INC-2013299794

PATIENT
  Age: 43 Year
  Sex: Female

DRUGS (4)
  1. XALKORI [Suspect]
     Indication: LUNG CANCER METASTATIC
     Dosage: 250 MG, 2X/DAY
     Route: 048
     Dates: start: 20120521
  2. MOTILIUM [Concomitant]
     Indication: NAUSEA
     Dosage: 20 MG, 3X/DAY
     Route: 048
     Dates: start: 201305
  3. MAXOLON [Concomitant]
     Indication: NAUSEA
     Dosage: 10 MG, 3X/DAY
     Route: 048
     Dates: start: 201305
  4. OMEPRAZOLE [Concomitant]
     Indication: NAUSEA
     Dosage: 20 MG, 1X/DAY
     Route: 048
     Dates: start: 201305

REACTIONS (5)
  - Lung disorder [Recovered/Resolved]
  - Dyspnoea [Recovered/Resolved]
  - Wheezing [Recovered/Resolved]
  - Increased bronchial secretion [Recovered/Resolved]
  - Respiratory tract infection [Recovered/Resolved]
